FAERS Safety Report 17662154 (Version 4)
Quarter: 2020Q2

REPORT INFORMATION
  Report Type: Report from Study
  Country: US (occurrence: US)
  Receive Date: 20200413
  Receipt Date: 20200630
  Transmission Date: 20200713
  Serious: Yes (Hospitalization)
  Sender: FDA-Public Use
  Company Number: US-GLAXOSMITHKLINE-US2020AMR022703

PATIENT
  Age: 59 Year
  Sex: Female

DRUGS (2)
  1. NIRAPARIB [Suspect]
     Active Substance: NIRAPARIB
     Indication: FALLOPIAN TUBE CANCER
     Dosage: 300 MG, QD
     Dates: start: 20191230
  2. NIRAPARIB [Suspect]
     Active Substance: NIRAPARIB
     Dosage: 300 MG, QD

REACTIONS (9)
  - Oral pain [Not Recovered/Not Resolved]
  - Dehydration [Recovered/Resolved]
  - Diarrhoea [Recovered/Resolved]
  - Nausea [Recovered/Resolved]
  - Carbohydrate antigen 125 increased [Recovering/Resolving]
  - Lip pain [Unknown]
  - Insomnia [Recovered/Resolved]
  - Oral contusion [Unknown]
  - Constipation [Recovered/Resolved]
